FAERS Safety Report 5005933-3 (Version None)
Quarter: 2006Q2

REPORT INFORMATION
  Report Type: 
  Country: None (occurrence: None)
  Receive Date: 20060517
  Receipt Date: 20060517
  Transmission Date: 20061013
  Serious: Yes (Hospitalization)
  Sender: FDA-Public Use
  Company Number: None

PATIENT
  Age: 53 Year
  Sex: Female
  Weight: 81.1939 kg

DRUGS (1)
  1. ETODOLAC [Suspect]
     Indication: ARTHROPATHY
     Dosage: 300MG BID PO
     Route: 048
     Dates: start: 20050215, end: 20050920

REACTIONS (1)
  - RENAL FAILURE ACUTE [None]
